FAERS Safety Report 25836477 (Version 2)
Quarter: 2025Q4

REPORT INFORMATION
  Report Type: Spontaneous
  Country: EU (occurrence: EU)
  Receive Date: 20250923
  Receipt Date: 20251006
  Transmission Date: 20260118
  Serious: Yes (Hospitalization, Other)
  Sender: AUROBINDO
  Company Number: EU-ROCHE-10000380919

PATIENT
  Age: 69 Year
  Sex: Female
  Weight: 70 kg

DRUGS (9)
  1. IRINOTECAN [Suspect]
     Active Substance: IRINOTECAN
     Indication: Colorectal cancer metastatic
     Dosage: 165 MILLIGRAM (DT: 305MG(75KG)ON 22-AUG-2025, SHE RECEIVED MOST RECENT DOSE OF IRINOTECAN 165 MG PRI
     Route: 042
     Dates: start: 20250731, end: 20250822
  2. OXALIPLATIN [Suspect]
     Active Substance: OXALIPLATIN
     Indication: Colorectal cancer metastatic
     Dosage: 85 MILLIGRAM (DT: 157MG(70KG)ON 22-AUG-2025, SHE RECEIVED MOST RECENT DOSE OF OXALIPLATIN 85 MG PRIO
     Route: 042
     Dates: start: 20250731, end: 20250822
  3. BEVACIZUMAB [Suspect]
     Active Substance: BEVACIZUMAB
     Indication: Colorectal cancer metastatic
     Dosage: DT: 375MG(75KG)ON 22-AUG-2025, SHE RECEIVED MOST RECENT DOSE OF BEVACIZUMAB 5MG/KG PRIOR TO SAE.
     Route: 042
     Dates: start: 20250731, end: 20250822
  4. ATEZOLIZUMAB [Suspect]
     Active Substance: ATEZOLIZUMAB
     Indication: Colorectal cancer metastatic
     Dosage: 840 MILLIGRAM (ON 22-AUG-2025, SHE RECEIVED MOST RECENT DOSE OF ATEZOLIZUMAB 840 MG PRIOR TO SAE.)
     Route: 042
     Dates: start: 20250731, end: 20250822
  5. FLUOROURACIL [Suspect]
     Active Substance: FLUOROURACIL
     Indication: Colorectal cancer metastatic
     Dosage: 3200 MILLIGRAM (DT: 5920 MG(70KG)ON 22-AUG-2025, SHE RECEIVED MOST RECENT DOSE OF 5FU 3200 MG PRIOR
     Route: 042
     Dates: start: 20250731, end: 20250822
  6. EZETIMIBE\ROSUVASTATIN CALCIUM [Concomitant]
     Active Substance: EZETIMIBE\ROSUVASTATIN CALCIUM
     Indication: Hypercholesterolaemia
     Dosage: 5-10 MG
     Route: 048
  7. CANDESARTAN CILEXETIL [Concomitant]
     Active Substance: CANDESARTAN CILEXETIL
     Indication: Hypertension
     Dosage: 16 MILLIGRAM, ONCE A DAY
     Route: 048
  8. PANTOPRAZOLE SODIUM [Concomitant]
     Active Substance: PANTOPRAZOLE SODIUM
     Indication: Product used for unknown indication
     Dosage: 20 MILLIGRAM, ONCE A DAY
     Route: 048
  9. MESALAMINE [Concomitant]
     Active Substance: MESALAMINE
     Indication: Product used for unknown indication
     Dosage: 800 MILLIGRAM, FOUR TIMES/DAY
     Route: 048

REACTIONS (2)
  - Rectal haemorrhage [Recovered/Resolved]
  - Neutropenia [Recovered/Resolved]

NARRATIVE: CASE EVENT DATE: 20250826
